FAERS Safety Report 18022890 (Version 2)
Quarter: 2020Q3

REPORT INFORMATION
  Report Type: Spontaneous
  Country: NL (occurrence: FR)
  Receive Date: 20200714
  Receipt Date: 20200729
  Transmission Date: 20201103
  Serious: Yes (Death)
  Sender: FDA-Public Use
  Company Number: FR-FRESENIUS KABI-FK202006998

PATIENT
  Age: 57 Year
  Sex: Male

DRUGS (5)
  1. LEVOFLOXACIN KABI (NOT SPECIFIED) [Suspect]
     Active Substance: LEVOFLOXACIN
     Indication: INFECTION
     Dosage: 500 MG 2 PER DAY ? 250 MG 1 PER DAY
     Route: 041
     Dates: start: 20200422, end: 20200604
  2. CEFTAZIDIME PENTAHYDRATE [Concomitant]
     Active Substance: CEFTAZIDIME
     Indication: SEPSIS
     Route: 041
     Dates: start: 20200418, end: 20200605
  3. CEFTAZIDIME PENTAHYDRATE/AVIBACTAM SODIUM [Suspect]
     Active Substance: AVIBACTAM SODIUM\CEFTAZIDIME
     Indication: SEPSIS
     Route: 041
     Dates: start: 20200418, end: 20200605
  4. ERYTHROMYCIN. [Interacting]
     Active Substance: ERYTHROMYCIN
     Indication: ILEUS PARALYTIC
  5. ERYTHROMYCIN. [Interacting]
     Active Substance: ERYTHROMYCIN
     Indication: INFECTION
     Route: 041
     Dates: start: 20200528, end: 20200605

REACTIONS (1)
  - Cardiogenic shock [Fatal]

NARRATIVE: CASE EVENT DATE: 20200608
